FAERS Safety Report 11986802 (Version 1)
Quarter: 2016Q1

REPORT INFORMATION
  Report Type: Spontaneous
  Country: US (occurrence: US)
  Receive Date: 20160202
  Receipt Date: 20160202
  Transmission Date: 20160526
  Serious: No
  Sender: FDA-Public Use
  Company Number: US-UCBSA-2014015868

PATIENT

DRUGS (4)
  1. CLONAZEPAM. [Concomitant]
     Active Substance: CLONAZEPAM
     Dosage: PATIENT NOW BEEN ON 0.5 DAILY FOR 4-5 MONTHS
  2. KEPPRA [Suspect]
     Active Substance: LEVETIRACETAM
     Indication: MYOCLONIC EPILEPSY
     Dosage: UNKNOWN INITIAL DOSE
  3. KEPPRA [Suspect]
     Active Substance: LEVETIRACETAM
     Dosage: DOSE WAS INCREASED TO 2500 MG
  4. CLONAZEPAM. [Concomitant]
     Active Substance: CLONAZEPAM
     Indication: MYOCLONIC EPILEPSY
     Dosage: UNKNWON DOSE

REACTIONS (5)
  - Fatigue [Unknown]
  - Mood swings [Unknown]
  - Pain [Unknown]
  - Nasal congestion [Unknown]
  - Drug ineffective [Unknown]
